FAERS Safety Report 4889414-3 (Version None)
Quarter: 2006Q1

REPORT INFORMATION
  Report Type: 
  Country: None (occurrence: None)
  Receive Date: 20060120
  Receipt Date: 20060103
  Transmission Date: 20060701
  Serious: Yes (Other)
  Sender: FDA-Public Use
  Company Number: DSA_70552_2005

PATIENT
  Age: 65 Year
  Sex: Female
  Weight: 58.514 kg

DRUGS (3)
  1. DARVOCET-N 100 [Suspect]
     Indication: INTERVERTEBRAL DISC PROTRUSION
     Dosage: 1 TAB QID PO
     Route: 048
     Dates: start: 19981101
  2. DARVOCET-N 100 [Suspect]
     Indication: INTERVERTEBRAL DISC PROTRUSION
     Dosage: 1 TAB TID PO
     Route: 048
  3. VALIUM [Concomitant]

REACTIONS (19)
  - ABNORMAL BEHAVIOUR [None]
  - AGGRESSION [None]
  - AGITATION [None]
  - ALANINE AMINOTRANSFERASE INCREASED [None]
  - ANGER [None]
  - ASPARTATE AMINOTRANSFERASE INCREASED [None]
  - BLOOD LACTATE DEHYDROGENASE INCREASED [None]
  - CONSTIPATION [None]
  - FIBROMYALGIA [None]
  - HYPERSENSITIVITY [None]
  - IMPATIENCE [None]
  - LUNG DISORDER [None]
  - LUNG NEOPLASM [None]
  - PHARMACEUTICAL PRODUCT COMPLAINT [None]
  - RENAL PAIN [None]
  - SCAR [None]
  - SELF ESTEEM DECREASED [None]
  - VIRAL INFECTION [None]
  - VISION BLURRED [None]
